FAERS Safety Report 4602045-5 (Version None)
Quarter: 2005Q1

REPORT INFORMATION
  Report Type: 
  Country: None (occurrence: None)
  Receive Date: 20050131
  Receipt Date: 20041203
  Transmission Date: 20050727
  Serious: Yes (Hospitalization)
  Sender: FDA-Public Use
  Company Number: 04P-163-0281264-00

PATIENT
  Age: 45 Year
  Sex: Male
  Weight: 59.4212 kg

DRUGS (9)
  1. SYNTHROID [Suspect]
     Indication: HYPOTHYROIDISM
     Dosage: 75 MCG, 1 IN 1 D, PER ORAL
     Route: 048
     Dates: start: 20041007, end: 20041008
  2. GLATIRAMER ACETATE [Suspect]
     Indication: MULTIPLE SCLEROSIS
     Dosage: 20 MG, DAILY, SUBCUTANEOUS
     Route: 058
     Dates: start: 19940101
  3. ACETAMINOPHEN [Concomitant]
  4. LORAZEPAM [Concomitant]
  5. METHYLPHENIDATE HCL [Concomitant]
  6. PROMETHAZINE HCL [Concomitant]
  7. VICODIN [Concomitant]
  8. NAPROXEN SODIUM [Concomitant]
  9. MECLIZINE [Concomitant]

REACTIONS (1)
  - CHEST PAIN [None]
